FAERS Safety Report 9728148 (Version 1)
Quarter: 2013Q4

REPORT INFORMATION
  Report Type: Spontaneous
  Country: US (occurrence: None)
  Receive Date: 20131202
  Receipt Date: 20131202
  Transmission Date: 20140711
  Serious: No
  Sender: FDA-Public Use
  Company Number: None

PATIENT
  Age: 12 Year
  Sex: Female

DRUGS (1)
  1. CLONIDINE [Suspect]
     Dosage: TWO BID PO
     Route: 048
     Dates: start: 20131115, end: 20131125

REACTIONS (6)
  - Abdominal discomfort [None]
  - Aggression [None]
  - Drug intolerance [None]
  - Product substitution issue [None]
  - Therapeutic response unexpected with drug substitution [None]
  - Drug effect decreased [None]
